FAERS Safety Report 4607628-4 (Version None)
Quarter: 2005Q1

REPORT INFORMATION
  Report Type: 
  Country: None (occurrence: None)
  Receive Date: 20050309
  Receipt Date: 20050218
  Transmission Date: 20050727
  Serious: Yes (Disabling, Other)
  Sender: FDA-Public Use
  Company Number: JP_050205927

PATIENT
  Age: 66 Year
  Sex: Female

DRUGS (5)
  1. EVISTA [Suspect]
     Indication: OSTEOPOROSIS
     Dosage: 60 MG DAY
     Dates: start: 20040630, end: 20050101
  2. ADONA  (CARBOZOCHROME SODIUM SULFONATE) [Concomitant]
  3. KALLIDINOGENASE [Concomitant]
  4. ADONA (CARBAZOCHROME SODIUM SULFONATE) [Concomitant]
  5. ADONA (CARBAZOCHROME SODIUM SULFONATE) [Concomitant]

REACTIONS (3)
  - EMBOLISM VENOUS [None]
  - PHLEBOTHROMBOSIS [None]
  - VISUAL ACUITY REDUCED [None]
